FAERS Safety Report 12258021 (Version 1)
Quarter: 2016Q2

REPORT INFORMATION
  Report Type: Report from Study
  Country: US (occurrence: US)
  Receive Date: 20160412
  Receipt Date: 20160412
  Transmission Date: 20160815
  Serious: Yes (Hospitalization, Other)
  Sender: FDA-Public Use
  Company Number: ADR-2014-01686

PATIENT
  Age: 32 Year
  Sex: Female

DRUGS (2)
  1. COMPOUNDED BACLOFEN [Suspect]
     Active Substance: BACLOFEN
     Dosage: 450.2 MCG/DAY
     Route: 037
  2. DILAUDID [Suspect]
     Active Substance: HYDROMORPHONE HYDROCHLORIDE
     Dosage: 1.238 MG/DAY
     Route: 037

REACTIONS (4)
  - Muscle spasticity [Recovered/Resolved]
  - Pain [Recovered/Resolved]
  - Medical device discomfort [Recovered/Resolved]
  - Therapeutic response decreased [Recovered/Resolved]
